FAERS Safety Report 4752623-8 (Version None)
Quarter: 2005Q3

REPORT INFORMATION
  Report Type: 
  Country: None (occurrence: None)
  Receive Date: 20050823
  Receipt Date: 20050804
  Transmission Date: 20060218
  Serious: Yes (Other)
  Sender: FDA-Public Use
  Company Number: FR_050806929

PATIENT
  Age: 75 Year
  Sex: Female

DRUGS (10)
  1. FORTEO [Suspect]
     Indication: OSTEOPOROSIS
     Dosage: 20 UG DAY
     Dates: start: 20040913, end: 20050718
  2. RAMIPRIL [Concomitant]
  3. ADANCOR (NICORANDIL) [Concomitant]
  4. ALDACTONE [Concomitant]
  5. FUROSEMIDE [Concomitant]
  6. AERIUS (DESLORATADINE [Concomitant]
  7. OXYCONTIN [Concomitant]
  8. PREVISCAN (FLUINDIONE) [Concomitant]
  9. CREON [Concomitant]
  10. DIGOXIN [Concomitant]

REACTIONS (3)
  - ABSCESS [None]
  - BLOOD ALKALINE PHOSPHATASE INCREASED [None]
  - BONE DISORDER [None]
